FAERS Safety Report 9703942 (Version 1)
Quarter: 2013Q4

REPORT INFORMATION
  Report Type: Spontaneous
  Country: US (occurrence: None)
  Receive Date: 20131121
  Receipt Date: 20131121
  Transmission Date: 20140711
  Serious: Yes (Life-Threatening, Hospitalization)
  Sender: FDA-Public Use
  Company Number: None

PATIENT
  Age: 63 Year
  Sex: Male
  Weight: 99.3 kg

DRUGS (21)
  1. ENOXAPARIN [Suspect]
     Indication: DEEP VEIN THROMBOSIS
     Dates: start: 20110921, end: 20110923
  2. HEPARIN [Concomitant]
  3. AMIDARONE [Concomitant]
  4. CEFEPIME [Concomitant]
  5. FENTANYL [Concomitant]
  6. HYDROMORPHONE [Concomitant]
  7. LANSOPRAZOLE [Concomitant]
  8. LEVOFLOXACIN [Concomitant]
  9. LEVOTHYROXINE [Concomitant]
  10. METRONIDAZOLE [Concomitant]
  11. MORPHINE [Concomitant]
  12. MYCOPHONOLATE [Concomitant]
  13. NYSTATIN [Concomitant]
  14. SIMVASTATIN [Concomitant]
  15. BACTRIM [Suspect]
  16. TERBUTALINE [Concomitant]
  17. VALGANCICLOVIR [Concomitant]
  18. VANCOMYCIN [Concomitant]
  19. NOREPINEPHRINE [Concomitant]
  20. MILRINONE [Concomitant]
  21. NESIRITIDE [Concomitant]

REACTIONS (6)
  - Pericardial effusion [None]
  - Haemodynamic instability [None]
  - Oliguria [None]
  - Cardiac tamponade [None]
  - Cardiac arrest [None]
  - Hypokalaemia [None]
